FAERS Safety Report 7231959-5 (Version None)
Quarter: 2011Q1

REPORT INFORMATION
  Report Type: 
  Country: None (occurrence: None)
  Receive Date: 20110118
  Receipt Date: 20101229
  Transmission Date: 20110831
  Serious: No
  Sender: FDA-Public Use
  Company Number: US-B.I. PHARMACEUTICALS,INC./RIDGEFIELD-2010-BP-13044BP

PATIENT
  Age: 71 Year
  Sex: Female

DRUGS (6)
  1. OXYGEN [Concomitant]
     Indication: CHRONIC OBSTRUCTIVE PULMONARY DISEASE
  2. RESCUE INHALER [Concomitant]
     Indication: CHRONIC OBSTRUCTIVE PULMONARY DISEASE
  3. SPIRIVA [Suspect]
     Indication: CHRONIC OBSTRUCTIVE PULMONARY DISEASE
     Dosage: 18 MCG
     Route: 055
     Dates: start: 20050211
  4. MULTI-VITAMINS [Concomitant]
     Indication: PROPHYLAXIS
  5. ADVAIR HFA [Concomitant]
     Indication: CHRONIC OBSTRUCTIVE PULMONARY DISEASE
  6. VENTOLIN [Concomitant]

REACTIONS (6)
  - TOOTH DISORDER [None]
  - MYALGIA [None]
  - TOOTH DISCOLOURATION [None]
  - BLOOD PRESSURE INCREASED [None]
  - DENTURE WEARER [None]
  - TOOTH LOSS [None]
